FAERS Safety Report 18126191 (Version 1)
Quarter: 2020Q3

REPORT INFORMATION
  Report Type: Report from Study
  Country: FR (occurrence: FR)
  Receive Date: 20200808
  Receipt Date: 20200808
  Transmission Date: 20201103
  Serious: Yes (Other)
  Sender: FDA-Public Use
  Company Number: FR-AUROBINDO-AUR-APL-2020-037911

PATIENT
  Age: 58 Year
  Sex: Male

DRUGS (1)
  1. AMIODARONE [Suspect]
     Active Substance: AMIODARONE
     Indication: ATRIAL FLUTTER
     Dosage: UNK
     Route: 065

REACTIONS (3)
  - Cholestatic liver injury [Unknown]
  - Mixed liver injury [Unknown]
  - Hepatic necrosis [Unknown]
